FAERS Safety Report 20321444 (Version 1)
Quarter: 2022Q1

REPORT INFORMATION
  Report Type: Spontaneous
  Country: US (occurrence: US)
  Receive Date: 20220111
  Receipt Date: 20220111
  Transmission Date: 20220423
  Serious: No
  Sender: FDA-Public Use
  Company Number: US-SUN PHARMACEUTICAL INDUSTRIES LTD-2021R1-319587

PATIENT
  Age: 38 Year
  Sex: Female

DRUGS (1)
  1. LEVULAN KERASTICK [Suspect]
     Active Substance: AMINOLEVULINIC ACID HYDROCHLORIDE
     Indication: Product used for unknown indication
     Dosage: UNK UNK, QD
     Route: 061
     Dates: start: 20211129, end: 20211129

REACTIONS (3)
  - Accidental exposure to product [Unknown]
  - Product deposit [Unknown]
  - Wound [Unknown]

NARRATIVE: CASE EVENT DATE: 20211129
